FAERS Safety Report 10065112 (Version 1)
Quarter: 2014Q2

REPORT INFORMATION
  Report Type: Spontaneous
  Country: IL (occurrence: IL)
  Receive Date: 20140408
  Receipt Date: 20140408
  Transmission Date: 20141212
  Serious: Yes (Other)
  Sender: FDA-Public Use
  Company Number: IL-INCYTE CORPORATION-2014IN000799

PATIENT
  Age: 84 Year
  Sex: Male

DRUGS (2)
  1. JAKAVI [Suspect]
     Indication: MYELOFIBROSIS
     Dosage: 20 MG, BID
     Route: 048
     Dates: start: 20140120
  2. JAKAVI [Suspect]
     Dosage: UNK UKN, UNK
     Route: 065

REACTIONS (1)
  - Renal failure acute [Not Recovered/Not Resolved]
